FAERS Safety Report 6924440-1 (Version None)
Quarter: 2010Q3

REPORT INFORMATION
  Report Type: 
  Country: None (occurrence: None)
  Receive Date: 20100811
  Receipt Date: 20100805
  Transmission Date: 20110219
  Serious: Yes (Disabling)
  Sender: FDA-Public Use
  Company Number: 2010SP042791

PATIENT
  Age: 89 Year
  Sex: Female
  Weight: 58 kg

DRUGS (6)
  1. BETAMETHASONE SODIUM PHOSPHATE [Suspect]
     Indication: BACK PAIN
     Dosage: 5 MG;ONCE;IM, 10 MG;ONCE;IM
     Route: 030
     Dates: start: 20090609, end: 20090609
  2. BETAMETHASONE SODIUM PHOSPHATE [Suspect]
     Indication: BACK PAIN
     Dosage: 5 MG;ONCE;IM, 10 MG;ONCE;IM
     Route: 030
     Dates: start: 20091005, end: 20091005
  3. CORDARONE [Concomitant]
  4. ZOCOR [Concomitant]
  5. RENITEN /00574902/ [Concomitant]
  6. ZANIDIP [Concomitant]

REACTIONS (2)
  - HAEMOGLOBIN DECREASED [None]
  - MEMORY IMPAIRMENT [None]
